FAERS Safety Report 21458630 (Version 1)
Quarter: 2022Q4

REPORT INFORMATION
  Report Type: Spontaneous
  Country: US (occurrence: US)
  Receive Date: 20221014
  Receipt Date: 20221014
  Transmission Date: 20230113
  Serious: No
  Sender: FDA-Public Use
  Company Number: US-PFIZER INC-PV202200078993

PATIENT
  Sex: Female

DRUGS (1)
  1. MYCOBUTIN [Interacting]
     Active Substance: RIFABUTIN
     Dosage: UNK

REACTIONS (1)
  - Drug interaction [Unknown]
